FAERS Safety Report 20362526 (Version 1)
Quarter: 2022Q1

REPORT INFORMATION
  Report Type: Spontaneous
  Country: TR (occurrence: TR)
  Receive Date: 20220121
  Receipt Date: 20220121
  Transmission Date: 20220423
  Serious: Yes (Life-Threatening, Other)
  Sender: FDA-Public Use
  Company Number: TR-UCBSA-2022001460

PATIENT
  Sex: Female
  Weight: 48 kg

DRUGS (1)
  1. CETIRIZINE HYDROCHLORIDE [Suspect]
     Active Substance: CETIRIZINE HYDROCHLORIDE
     Indication: Allergic cough
     Dosage: 10 MG, 1 TABLET PER DAY
     Route: 065
     Dates: start: 20211227, end: 20220101

REACTIONS (15)
  - Suicidal ideation [Not Recovered/Not Resolved]
  - Mental impairment [Not Recovered/Not Resolved]
  - Amnesia [Not Recovered/Not Resolved]
  - Illusion [Not Recovered/Not Resolved]
  - Dry mouth [Not Recovered/Not Resolved]
  - Somnolence [Not Recovered/Not Resolved]
  - Mental disorder [Not Recovered/Not Resolved]
  - Thinking abnormal [Not Recovered/Not Resolved]
  - Negative thoughts [Not Recovered/Not Resolved]
  - Crying [Not Recovered/Not Resolved]
  - Communication disorder [Not Recovered/Not Resolved]
  - Palpitations [Not Recovered/Not Resolved]
  - Sensory disturbance [Not Recovered/Not Resolved]
  - Depressed mood [Not Recovered/Not Resolved]
  - Therapeutic product effect incomplete [Unknown]

NARRATIVE: CASE EVENT DATE: 20211228
